FAERS Safety Report 5589690-8 (Version None)
Quarter: 2008Q1

REPORT INFORMATION
  Report Type: 
  Country: None (occurrence: None)
  Receive Date: 20080114
  Receipt Date: 20080114
  Transmission Date: 20080703
  Serious: Yes (Other)
  Sender: FDA-Public Use
  Company Number: B0484035A

PATIENT
  Age: 9 Year
  Sex: Male

DRUGS (5)
  1. ABACAVIR [Suspect]
     Indication: HIV INFECTION
     Dates: start: 20070629, end: 20070701
  2. LAMIVUDINE [Suspect]
     Indication: HIV INFECTION
     Dates: start: 20070629
  3. NEVIRAPINE [Suspect]
     Indication: HIV INFECTION
     Dates: start: 20070629
  4. ZIDOVUDINE [Suspect]
     Indication: HIV INFECTION
     Dates: start: 20070629
  5. COTRIMOXAZOLE [Concomitant]
     Indication: HIV INFECTION
     Dates: start: 20070615

REACTIONS (12)
  - ABDOMINAL PAIN [None]
  - COUGH [None]
  - DRUG HYPERSENSITIVITY [None]
  - DYSPNOEA [None]
  - FATIGUE [None]
  - MALAISE [None]
  - NAUSEA [None]
  - PHARYNGITIS [None]
  - PHARYNGOLARYNGEAL PAIN [None]
  - PYREXIA [None]
  - UPPER RESPIRATORY TRACT INFECTION [None]
  - VOMITING [None]
